FAERS Safety Report 24172740 (Version 2)
Quarter: 2024Q3

REPORT INFORMATION
  Report Type: Spontaneous
  Country: GB (occurrence: GB)
  Receive Date: 20240805
  Receipt Date: 20240812
  Transmission Date: 20241016
  Serious: Yes (Other)
  Sender: MYLAN
  Company Number: GB-MHRA-TPP19478662C21992317YC1722418691609

PATIENT
  Age: 75 Year
  Sex: Female
  Weight: 67 kg

DRUGS (8)
  1. AMLODIPINE [Suspect]
     Active Substance: AMLODIPINE BESYLATE
     Indication: Hypertension
     Dosage: 10 MILLIGRAM, QD
     Route: 065
     Dates: start: 20240515
  2. RAMIPRIL [Concomitant]
     Active Substance: RAMIPRIL
     Dosage: 1 DOSAGE FORM, QD
     Route: 065
  3. ATORVASTATIN [Concomitant]
     Active Substance: ATORVASTATIN
     Dosage: 1 DOSAGE FORM, QD
     Route: 065
     Dates: start: 20240426
  4. FLUTICASONE FUROATE [Concomitant]
     Active Substance: FLUTICASONE FUROATE
     Dosage: UNK, QD (1-2 SPRAYS PER NOSTRIL ONCE DAILY )
     Route: 045
     Dates: start: 20240426
  5. Hylo night [Concomitant]
     Dosage: UNK, QD (TO BOTH EYES AT NIGHT)
     Route: 065
     Dates: start: 20240426
  6. LEVOTHYROXINE [Concomitant]
     Active Substance: LEVOTHYROXINE\LEVOTHYROXINE SODIUM
     Dosage: 1 DOSAGE FORM, QD (EACH MORNING)
     Route: 065
     Dates: start: 20240426
  7. HYALURONATE SODIUM\TREHALOSE [Concomitant]
     Active Substance: HYALURONATE SODIUM\TREHALOSE
     Dosage: 2 DOSAGE FORM, Q8H (1 DROP IN EACH EYE)
     Route: 065
     Dates: start: 20240426
  8. VAGIFEM [Concomitant]
     Active Substance: ESTRADIOL
     Dosage: UNK (TWICE WEEKLY OR EVEN ALTERNATE DAYS)
     Route: 065
     Dates: start: 20240426

REACTIONS (2)
  - Joint swelling [Recovering/Resolving]
  - Peripheral swelling [Unknown]
